FAERS Safety Report 7323405-8 (Version None)
Quarter: 2011Q1

REPORT INFORMATION
  Report Type: 
  Country: None (occurrence: None)
  Receive Date: 20110301
  Receipt Date: 20110221
  Transmission Date: 20110831
  Serious: Yes (Hospitalization)
  Sender: FDA-Public Use
  Company Number: US-B.I. PHARMACEUTICALS,INC./RIDGEFIELD-2011-BP-04759BP

PATIENT
  Sex: Female

DRUGS (12)
  1. POTASSIUM [Concomitant]
     Indication: PROPHYLAXIS
  2. NORVASC [Concomitant]
     Indication: HYPERTENSION
  3. LISINOPRIL [Concomitant]
     Indication: HYPERTENSION
  4. FISH OIL [Concomitant]
     Indication: PROPHYLAXIS
  5. OMEPRAZOLE [Concomitant]
     Indication: ABDOMINAL DISCOMFORT
  6. VITAMIN B COMPLEX CAP [Concomitant]
     Indication: PROPHYLAXIS
  7. FUROSEMIDE [Concomitant]
     Indication: CARDIAC DISORDER
  8. TOPROL-XL [Concomitant]
     Indication: HYPERTENSION
  9. CALCIUM [Concomitant]
     Indication: PROPHYLAXIS
  10. PRADAXA [Suspect]
     Indication: ATRIAL FIBRILLATION
     Dosage: 150 MG
     Route: 048
     Dates: start: 20110201, end: 20110201
  11. SYNTHROID [Concomitant]
     Indication: HYPOTHYROIDISM
  12. ZETIA [Concomitant]
     Indication: BLOOD CHOLESTEROL INCREASED

REACTIONS (1)
  - RECTAL HAEMORRHAGE [None]
